FAERS Safety Report 8676234 (Version 35)
Quarter: 2021Q3

REPORT INFORMATION
  Report Type: Spontaneous
  Country: GB (occurrence: GB)
  Receive Date: 20120720
  Receipt Date: 20210929
  Transmission Date: 20211014
  Serious: Yes (Congenital Anomaly, Other)
  Sender: FDA-Public Use
  Company Number: GB-MSD-1007GBR00039B1

PATIENT
  Age: 1 Day
  Sex: Male
  Weight: 3.1 kg

DRUGS (17)
  1. VIREAD [Suspect]
     Active Substance: TENOFOVIR DISOPROXIL FUMARATE
     Indication: PRODUCT USED FOR UNKNOWN INDICATION
     Dosage: UNK
     Route: 064
     Dates: start: 20100610, end: 20100629
  2. KALETRA [Suspect]
     Active Substance: LOPINAVIR\RITONAVIR
     Indication: PRODUCT USED FOR UNKNOWN INDICATION
     Dosage: UNK
     Route: 064
     Dates: start: 20100610
  3. VIREAD [Suspect]
     Active Substance: TENOFOVIR DISOPROXIL FUMARATE
     Indication: HIV INFECTION
  4. ZIDOVUDINE. [Suspect]
     Active Substance: ZIDOVUDINE
     Indication: HIV INFECTION
  5. LAMIVUDINE. [Suspect]
     Active Substance: LAMIVUDINE
     Indication: HIV INFECTION
     Dosage: 150 UNK
     Route: 064
  6. NEVIRAPINE. [Suspect]
     Active Substance: NEVIRAPINE
     Indication: HIV INFECTION
     Dosage: UNK
     Route: 064
     Dates: start: 20100610
  7. KALETRA [Suspect]
     Active Substance: LOPINAVIR\RITONAVIR
     Indication: HIV INFECTION
     Dosage: UNK
     Route: 064
  8. ISENTRESS [Suspect]
     Active Substance: RALTEGRAVIR POTASSIUM
     Indication: HIV INFECTION
     Dosage: 800 MILLIGRAM, QID
     Route: 064
     Dates: start: 20100610
  9. ALUVIA [Suspect]
     Active Substance: LOPINAVIR\RITONAVIR
     Indication: ANTIRETROVIRAL THERAPY
     Dosage: UNK
     Route: 064
     Dates: start: 20100610, end: 20100629
  10. TENOFOVIR DISOPROXIL FUMARATE. [Suspect]
     Active Substance: TENOFOVIR DISOPROXIL FUMARATE
     Indication: HIV INFECTION
     Dosage: 300 MG, QD
     Route: 064
     Dates: start: 20100610, end: 20100629
  11. VIREAD [Suspect]
     Active Substance: TENOFOVIR DISOPROXIL FUMARATE
     Indication: FOETAL EXPOSURE DURING PREGNANCY
  12. LAMIVUDINE. [Suspect]
     Active Substance: LAMIVUDINE
     Indication: ANTIRETROVIRAL THERAPY
     Dosage: 300 MG, QD
     Route: 064
     Dates: start: 20090101, end: 20100610
  13. LAMIVUDINE. [Suspect]
     Active Substance: LAMIVUDINE
     Dosage: UNK
     Route: 064
     Dates: start: 20100610
  14. KALETRA [Suspect]
     Active Substance: LOPINAVIR\RITONAVIR
     Indication: FOETAL EXPOSURE DURING PREGNANCY
  15. NEVIRAPINE. [Suspect]
     Active Substance: NEVIRAPINE
     Indication: ANTIRETROVIRAL THERAPY
     Dosage: UNK
     Route: 064
     Dates: start: 20090101, end: 20100610
  16. ZIDOVUDINE. [Suspect]
     Active Substance: ZIDOVUDINE
     Indication: ANTIRETROVIRAL THERAPY
     Dosage: UNK
     Route: 064
     Dates: start: 20090110, end: 20100610
  17. LOPINAVIR;RITONAVIR [Suspect]
     Active Substance: LOPINAVIR\RITONAVIR
     Indication: HIV INFECTION
     Dosage: UNK
     Route: 064
     Dates: start: 20100610, end: 20100629

REACTIONS (2)
  - Foetal exposure during pregnancy [Recovered/Resolved]
  - Volvulus [Unknown]
